FAERS Safety Report 19681613 (Version 1)
Quarter: 2021Q3

REPORT INFORMATION
  Report Type: Spontaneous
  Country: US (occurrence: US)
  Receive Date: 20210810
  Receipt Date: 20210810
  Transmission Date: 20211014
  Serious: Yes (Other)
  Sender: FDA-Public Use
  Company Number: US-ELI_LILLY_AND_COMPANY-US202108000043

PATIENT
  Sex: Female

DRUGS (4)
  1. HUMALOG [Suspect]
     Active Substance: INSULIN LISPRO
     Indication: TYPE 2 DIABETES MELLITUS
     Dosage: 15 U, EACH MORNING
     Route: 058
     Dates: start: 2017
  2. HUMALOG [Suspect]
     Active Substance: INSULIN LISPRO
     Dosage: 15 U, EACH MORNING
     Route: 058
  3. HUMALOG [Suspect]
     Active Substance: INSULIN LISPRO
     Dosage: 25 U, EACH EVENING
     Route: 058
     Dates: start: 2017
  4. HUMALOG [Suspect]
     Active Substance: INSULIN LISPRO
     Dosage: 25 U, EACH EVENING
     Route: 058

REACTIONS (4)
  - Vision blurred [Not Recovered/Not Resolved]
  - Cardiac disorder [Not Recovered/Not Resolved]
  - Chronic kidney disease [Not Recovered/Not Resolved]
  - Visual impairment [Not Recovered/Not Resolved]
